FAERS Safety Report 7682397-2 (Version None)
Quarter: 2011Q3

REPORT INFORMATION
  Report Type: 
  Country: None (occurrence: None)
  Receive Date: 20110815
  Receipt Date: 20110802
  Transmission Date: 20111222
  Serious: Yes (Life-Threatening)
  Sender: FDA-Public Use
  Company Number: JP-BRISTOL-MYERS SQUIBB COMPANY-15940984

PATIENT
  Age: 40 Year
  Sex: Female

DRUGS (5)
  1. INNOLET N [Concomitant]
     Indication: BLOOD GLUCOSE
  2. METFORMIN HCL [Suspect]
     Indication: DIABETES MELLITUS
     Dosage: 250 MG 3 PER DAY
     Route: 048
     Dates: start: 20110716, end: 20110724
  3. INSULIN [Concomitant]
     Indication: BLOOD GLUCOSE
     Dates: start: 20110716
  4. SODIUM BICARBONATE [Concomitant]
  5. SUNRYTHM [Concomitant]
     Dates: start: 20110701

REACTIONS (1)
  - LACTIC ACIDOSIS [None]
